FAERS Safety Report 5631909-9 (Version None)
Quarter: 2008Q1

REPORT INFORMATION
  Report Type: 
  Country: None (occurrence: None)
  Receive Date: 20080220
  Receipt Date: 20080211
  Transmission Date: 20080703
  Serious: Yes (Other)
  Sender: FDA-Public Use
  Company Number: US-AMGEN-US264919

PATIENT
  Age: 40 Year
  Sex: Male

DRUGS (2)
  1. EPOGEN [Suspect]
     Indication: DIALYSIS
     Dates: start: 20030101
  2. TESTOSTERONE [Concomitant]

REACTIONS (2)
  - APLASIA PURE RED CELL [None]
  - AUTOIMMUNE DISORDER [None]
